FAERS Safety Report 21236714 (Version 1)
Quarter: 2022Q3

REPORT INFORMATION
  Report Type: Spontaneous
  Country: US (occurrence: US)
  Receive Date: 20220822
  Receipt Date: 20220822
  Transmission Date: 20221027
  Serious: No
  Sender: FDA-Public Use
  Company Number: US-BAUSCH-BL-2022-020089

PATIENT
  Age: 64 Year
  Sex: Female

DRUGS (1)
  1. BEPOTASTINE BESYLATE [Suspect]
     Active Substance: BEPOTASTINE BESYLATE
     Indication: Eye allergy
     Dosage: 1 DROP INTO BOTH EYES TWICE DAILY
     Route: 047

REACTIONS (5)
  - Nasal dryness [Not Recovered/Not Resolved]
  - Instillation site dryness [Unknown]
  - Product delivery mechanism issue [Unknown]
  - Extra dose administered [Unknown]
  - Product substitution issue [Unknown]
